FAERS Safety Report 6592965-7 (Version None)
Quarter: 2010Q1

REPORT INFORMATION
  Report Type: 
  Country: None (occurrence: None)
  Receive Date: 20100212
  Receipt Date: 20100204
  Transmission Date: 20100710
  Serious: Yes (Other)
  Sender: FDA-Public Use
  Company Number: 2010SP005076

PATIENT
  Age: 68 Year
  Sex: Female
  Weight: 44 kg

DRUGS (4)
  1. REBETOL [Suspect]
     Indication: HEPATITIS C
     Dosage: 600 MG; QD; PO
     Route: 048
     Dates: start: 20100115
  2. INTERFERON [Suspect]
     Indication: HEPATITIS C
     Dosage: 6 MIU; QD; INDRP, 6 MIU; TIW; INDRP
     Route: 041
     Dates: start: 20100115, end: 20100121
  3. INTERFERON [Suspect]
     Indication: HEPATITIS C
     Dosage: 6 MIU; QD; INDRP, 6 MIU; TIW; INDRP
     Route: 041
     Dates: start: 20100123
  4. EVISTA [Concomitant]

REACTIONS (8)
  - CARDIAC FAILURE CONGESTIVE [None]
  - CARDIOMEGALY [None]
  - CONDITION AGGRAVATED [None]
  - COUGH [None]
  - FACE OEDEMA [None]
  - OEDEMA PERIPHERAL [None]
  - PLEURAL EFFUSION [None]
  - WEIGHT INCREASED [None]
